FAERS Safety Report 12999522 (Version 1)
Quarter: 2016Q4

REPORT INFORMATION
  Report Type: Spontaneous
  Country: KH (occurrence: KH)
  Receive Date: 20161205
  Receipt Date: 20161205
  Transmission Date: 20170207
  Serious: Yes (Life-Threatening, Hospitalization, Disabling)
  Sender: FDA-Public Use
  Company Number: KH-FRESENIUS KABI-FK201609464

PATIENT
  Age: 32 Year
  Sex: Female

DRUGS (2)
  1. LEVOFLOXACIN (MANUFACTURER UNKNOWN) [Suspect]
     Active Substance: LEVOFLOXACIN
     Indication: GASTROENTERITIS
     Route: 040
     Dates: start: 20120110
  2. LEVOFLOXACIN (MANUFACTURER UNKNOWN) [Suspect]
     Active Substance: LEVOFLOXACIN
     Route: 048
     Dates: start: 20120111, end: 20120120

REACTIONS (21)
  - Gastritis [Recovered/Resolved]
  - Asthenia [Recovered/Resolved]
  - Akathisia [Recovered/Resolved]
  - Diarrhoea [Recovered/Resolved]
  - Impaired work ability [Not Recovered/Not Resolved]
  - Visual impairment [Recovered/Resolved with Sequelae]
  - Tremor [Recovered/Resolved]
  - Drug ineffective [Unknown]
  - Muscular weakness [Not Recovered/Not Resolved]
  - Migraine [Recovered/Resolved with Sequelae]
  - Musculoskeletal pain [Not Recovered/Not Resolved]
  - Memory impairment [Not Recovered/Not Resolved]
  - Vomiting [Recovered/Resolved]
  - Feeling abnormal [Recovered/Resolved with Sequelae]
  - Fatigue [Recovered/Resolved with Sequelae]
  - Duodenogastric reflux [Not Recovered/Not Resolved]
  - Paralysis [Not Recovered/Not Resolved]
  - Respiratory depression [Recovered/Resolved]
  - Depression [Recovered/Resolved with Sequelae]
  - Dizziness [Recovered/Resolved with Sequelae]
  - Anxiety [Recovered/Resolved with Sequelae]

NARRATIVE: CASE EVENT DATE: 2012
